FAERS Safety Report 23669570 (Version 1)
Quarter: 2024Q1

REPORT INFORMATION
  Report Type: Spontaneous
  Country: BR (occurrence: BR)
  Receive Date: 20240325
  Receipt Date: 20240325
  Transmission Date: 20240409
  Serious: Yes (Other)
  Sender: FDA-Public Use
  Company Number: BR-GLAXOSMITHKLINE-BR2024035298

PATIENT

DRUGS (1)
  1. VALTREX [Suspect]
     Active Substance: VALACYCLOVIR HYDROCHLORIDE
     Indication: Prophylaxis
     Dosage: UNK, QD

REACTIONS (5)
  - Angioedema [Unknown]
  - Nephrectomy [Unknown]
  - Herpes zoster [Unknown]
  - Hepatomegaly [Unknown]
  - Herpes simplex [Unknown]
